FAERS Safety Report 5092000-6 (Version None)
Quarter: 2006Q3

REPORT INFORMATION
  Report Type: 
  Country: None (occurrence: None)
  Receive Date: 20060825
  Receipt Date: 20060811
  Transmission Date: 20061208
  Serious: Yes (Hospitalization)
  Sender: FDA-Public Use
  Company Number: FR200607000872

PATIENT
  Age: 84 Year
  Sex: Female
  Weight: 61 kg

DRUGS (9)
  1. FORTEO [Suspect]
     Indication: OSTEOPOROSIS
     Dosage: 20 UG, DAILY, (1/D), SUBCUTANEOUS
  2. FORTEO PEN (FORTEO PEN 250 MCG/ML) [Concomitant]
  3. APPROVEL (IRBESARTAN) TABLET [Concomitant]
  4. TRIVASTAL (PIRIBEDIL) [Concomitant]
  5. XANAX [Concomitant]
  6. TENORMIN [Concomitant]
  7. OROCAL D (3) (CALCIUM CARBONATE, COLECALCIFEROL) [Concomitant]
  8. TANAKAN (GINKGO BILOBA EXTRACT) [Concomitant]
  9. STRUCTUM (CHONDROITIN SULFATE SODIUM) [Concomitant]

REACTIONS (1)
  - ATRIAL FIBRILLATION [None]
